FAERS Safety Report 4362152-1 (Version None)
Quarter: 2004Q2

REPORT INFORMATION
  Report Type: 
  Country: None (occurrence: None)
  Receive Date: 20040517
  Receipt Date: 20040508
  Transmission Date: 20050107
  Serious: Yes (Hospitalization)
  Sender: FDA-Public Use
  Company Number: 2004031330

PATIENT
  Age: 28 Year
  Sex: Male
  Weight: 55 kg

DRUGS (3)
  1. MAGNEX (CEFOPERAZONE, SULBACTAM) [Suspect]
     Indication: GASTROINTESTINAL PERFORATION
     Dosage: 2 GRAM (1 GRAM, BID), INTRAVENOUS
     Route: 042
     Dates: start: 20040101, end: 20040101
  2. AMIKACIN [Concomitant]
  3. METRONIDAZOLE [Concomitant]

REACTIONS (1)
  - PLATELET COUNT DECREASED [None]
